FAERS Safety Report 10087122 (Version 1)
Quarter: 2014Q2

REPORT INFORMATION
  Report Type: Other
  Country: US (occurrence: US)
  Receive Date: 20140418
  Receipt Date: 20140418
  Transmission Date: 20141212
  Serious: Yes (Other)
  Sender: FDA-Public Use
  Company Number: US-BRISTOL-MYERS SQUIBB COMPANY-20655700

PATIENT
  Age: 59 Year
  Sex: Female

DRUGS (2)
  1. CARBOPLATIN [Suspect]
     Indication: OVARIAN CANCER
     Route: 042
  2. PACLITAXEL [Suspect]
     Dosage: 1DF: 175MG/M

REACTIONS (1)
  - Hypersensitivity [Recovered/Resolved]
